FAERS Safety Report 5143722-X (Version None)
Quarter: 2006Q4

REPORT INFORMATION
  Report Type: 
  Country: None (occurrence: None)
  Receive Date: 20061104
  Receipt Date: 20061025
  Transmission Date: 20070319
  Serious: Yes (Death)
  Sender: FDA-Public Use
  Company Number: IT-ABBOTT-06P-083-0348046-00

PATIENT
  Sex: Male

DRUGS (6)
  1. DEPAKENE [Suspect]
     Indication: PETIT MAL EPILEPSY
     Route: 048
  2. DEPAKENE [Suspect]
     Dosage: DOSAGE PROGRESSIVELY INCREASED
     Dates: start: 20030603
  3. DEPAKENE [Suspect]
     Indication: GRAND MAL CONVULSION
  4. LEVETIRACETAM [Suspect]
     Indication: PHOTOSENSITIVITY REACTION
     Route: 048
     Dates: start: 20060428
  5. LEVETIRACETAM [Suspect]
  6. LEVETIRACETAM [Suspect]
     Indication: GRAND MAL CONVULSION

REACTIONS (2)
  - DRUG INEFFECTIVE [None]
  - SUDDEN DEATH [None]
